FAERS Safety Report 5477497-1 (Version None)
Quarter: 2007Q4

REPORT INFORMATION
  Report Type: 
  Country: None (occurrence: None)
  Receive Date: 20071004
  Receipt Date: 20070925
  Transmission Date: 20080405
  Serious: Yes (Other)
  Sender: FDA-Public Use
  Company Number: US-PFIZER INC-2007081868

PATIENT
  Sex: Female
  Weight: 59 kg

DRUGS (3)
  1. CHANTIX [Suspect]
     Indication: EX-SMOKER
  2. ADVAIR DISKUS 100/50 [Concomitant]
  3. EFFEXOR [Concomitant]

REACTIONS (3)
  - FACIAL PALSY [None]
  - LABYRINTHITIS [None]
  - VERTIGO [None]
